FAERS Safety Report 6747056-9 (Version None)
Quarter: 2010Q2

REPORT INFORMATION
  Report Type: 
  Country: None (occurrence: None)
  Receive Date: 20100528
  Receipt Date: 20100520
  Transmission Date: 20101027
  Serious: Yes (Hospitalization)
  Sender: FDA-Public Use
  Company Number: JP-ROCHE-705527

PATIENT
  Sex: Male

DRUGS (11)
  1. TOCILIZUMAB [Suspect]
     Indication: RHEUMATOID ARTHRITIS
     Route: 041
     Dates: start: 20090617, end: 20090617
  2. TOCILIZUMAB [Suspect]
     Route: 041
     Dates: start: 20090715, end: 20090715
  3. TOCILIZUMAB [Suspect]
     Route: 041
     Dates: start: 20090812, end: 20090812
  4. TOCILIZUMAB [Suspect]
     Route: 041
     Dates: start: 20090911, end: 20090911
  5. TOCILIZUMAB [Suspect]
     Route: 041
     Dates: start: 20091007, end: 20091007
  6. TOCILIZUMAB [Suspect]
     Route: 041
     Dates: start: 20091104, end: 20091104
  7. METHOTREXATE [Concomitant]
     Dosage: PERORAL AGENT
  8. FOLIAMIN [Concomitant]
     Route: 048
  9. ALENDRONATE SODIUM [Concomitant]
     Dosage: DRUG NAME : FOSAMAC 35MG(ALENDRONATE SODIUM HYDRATE)
     Route: 048
  10. HYPEN [Concomitant]
  11. COTRIM [Concomitant]
     Route: 048

REACTIONS (1)
  - SYNOVITIS [None]
